FAERS Safety Report 6696164-X (Version None)
Quarter: 2010Q2

REPORT INFORMATION
  Report Type: 
  Country: None (occurrence: None)
  Receive Date: 20100426
  Receipt Date: 20090313
  Transmission Date: 20101027
  Serious: No
  Sender: FDA-Public Use
  Company Number: A0773231A

PATIENT
  Age: 60 Year
  Sex: Male

DRUGS (8)
  1. AMERGE [Suspect]
     Indication: MIGRAINE
     Dosage: 2.5MG AS REQUIRED
     Route: 048
     Dates: start: 20090210, end: 20090228
  2. NORTRIPTYLINE HCL [Concomitant]
  3. FAMOTIDINE [Concomitant]
  4. UROXATRAL [Concomitant]
  5. FINASTERIDE [Concomitant]
  6. METOPROLOL TARTRATE [Concomitant]
  7. SIMVASTATIN [Concomitant]
  8. NEXIUM [Concomitant]

REACTIONS (2)
  - ABDOMINAL PAIN UPPER [None]
  - DIARRHOEA [None]
